FAERS Safety Report 25665088 (Version 1)
Quarter: 2025Q3

REPORT INFORMATION
  Report Type: Spontaneous
  Country: US (occurrence: None)
  Receive Date: 20250809
  Receipt Date: 20250809
  Transmission Date: 20251021
  Serious: Yes (Hospitalization)
  Sender: FDA-CTU
  Company Number: None

PATIENT
  Age: 33 Year
  Sex: Female
  Weight: 71.6 kg

DRUGS (4)
  1. ENCORAFENIB [Suspect]
     Active Substance: ENCORAFENIB
     Indication: Metastatic malignant melanoma
     Dosage: FREQUENCY : DAILY;?
     Route: 048
     Dates: start: 20250612, end: 20250720
  2. BINIMETINIB [Suspect]
     Active Substance: BINIMETINIB
     Indication: Metastatic malignant melanoma
     Dosage: FREQUENCY : TWICE A DAY;?
     Route: 048
     Dates: start: 20250612, end: 20250720
  3. ENCORAFENIB [Concomitant]
     Active Substance: ENCORAFENIB
     Dates: start: 20250612, end: 20250720
  4. BINIMETINIB [Concomitant]
     Active Substance: BINIMETINIB
     Dates: start: 20250612, end: 20250720

REACTIONS (5)
  - Aspartate aminotransferase increased [None]
  - Alanine aminotransferase increased [None]
  - Toxicity to various agents [None]
  - Blood bilirubin increased [None]
  - Therapy cessation [None]

NARRATIVE: CASE EVENT DATE: 20250720
